FAERS Safety Report 10135245 (Version 1)
Quarter: 2014Q2

REPORT INFORMATION
  Report Type: Spontaneous
  Country: IT (occurrence: IT)
  Receive Date: 20140428
  Receipt Date: 20140428
  Transmission Date: 20141212
  Serious: Yes (Other)
  Sender: FDA-Public Use
  Company Number: IT-WATSON-2014-08308

PATIENT
  Age: 60 Year
  Sex: Female

DRUGS (6)
  1. LORAZEPAM (UNKNOWN) [Suspect]
     Indication: MEDICATION ERROR
     Dosage: 1 MG, DAILY
     Route: 048
     Dates: start: 20140328, end: 20140328
  2. CLOZAPINE (UNKNOWN) [Suspect]
     Indication: MEDICATION ERROR
     Dosage: 100 MG, DAILY
     Route: 048
     Dates: start: 20140328, end: 20140328
  3. RISPERDAL [Suspect]
     Indication: MEDICATION ERROR
     Dosage: 4 MG, DAILY
     Route: 048
     Dates: start: 20140328, end: 20140328
  4. ABILIFY [Suspect]
     Indication: MEDICATION ERROR
     Dosage: 10 MG, DAILY
     Route: 048
     Dates: start: 20140328, end: 20140328
  5. DEPAKIN CHRONO [Suspect]
     Indication: MEDICATION ERROR
     Dosage: 500 MG, DAILY
     Route: 048
     Dates: start: 20140328, end: 20140328
  6. AKINETON                           /00079501/ [Suspect]
     Indication: MEDICATION ERROR
     Dosage: 4 MG, DAILY
     Route: 048
     Dates: start: 20140328, end: 20140328

REACTIONS (2)
  - Sopor [Unknown]
  - Medication error [Unknown]
